FAERS Safety Report 9461715 (Version 1)
Quarter: 2013Q3

REPORT INFORMATION
  Report Type: Report from Study
  Country: DE (occurrence: DE)
  Receive Date: 20130816
  Receipt Date: 20130816
  Transmission Date: 20140515
  Serious: Yes (Hospitalization)
  Sender: FDA-Public Use
  Company Number: DE-ASTELLAS-2013EU006320

PATIENT
  Sex: Female

DRUGS (17)
  1. TACROLIMUS MR4 CAPSULES [Suspect]
     Indication: RENAL TRANSPLANT
     Dosage: 6 MG, UID/QD
     Route: 048
     Dates: start: 20090711
  2. SIMULECT [Suspect]
     Indication: RENAL TRANSPLANT
     Dosage: 20 MG, UID/QD
     Route: 042
     Dates: start: 20090711
  3. CELLCEPT /01275102/ [Suspect]
     Indication: RENAL TRANSPLANT
     Dosage: 1000 MG, BID
     Route: 048
     Dates: start: 20090711, end: 20100119
  4. CELLCEPT /01275102/ [Suspect]
     Dosage: 2000 MG, UNKNOWN/D
     Route: 048
     Dates: start: 20100124
  5. DECORTIN H [Suspect]
     Indication: RENAL TRANSPLANT
     Dosage: 10 MG, UID/QD
     Route: 048
     Dates: start: 20090711
  6. L-THYROXIN [Concomitant]
     Indication: HYPOTHYROIDISM
     Dosage: 50 UG, UNKNOWN/D
     Route: 065
     Dates: start: 20090715
  7. CONCOR [Concomitant]
     Indication: RENAL HYPERTENSION
     Dosage: 2.5 MG, UNKNOWN/D
     Route: 065
     Dates: start: 20090715
  8. PANTOZOL                           /01263204/ [Concomitant]
     Indication: PROPHYLAXIS
     Dosage: 40 MG, UNKNOWN/D
     Route: 065
     Dates: start: 20090713, end: 20090718
  9. PANTOZOL                           /01263204/ [Concomitant]
     Dosage: 40 MG, UNKNOWN/D
     Route: 065
     Dates: start: 20090719, end: 20090802
  10. PANTOZOL                           /01263204/ [Concomitant]
     Dosage: 40 MG, UNKNOWN/D
     Route: 065
     Dates: start: 20100118, end: 20100801
  11. PANTOZOL                           /01263204/ [Concomitant]
     Dosage: 40 MG, UNKNOWN/D
     Route: 065
     Dates: start: 20090802
  12. MESTINON [Concomitant]
     Indication: MYASTHENIA GRAVIS
     Dosage: 10 MG, UNKNOWN/D
     Route: 065
     Dates: start: 20090712, end: 20090712
  13. MESTINON [Concomitant]
     Dosage: 10 MG, UNKNOWN/D
     Route: 065
     Dates: start: 20090713, end: 20090908
  14. MESTINON [Concomitant]
     Dosage: 10 MG, UNKNOWN/D
     Route: 065
     Dates: start: 20090909, end: 20100117
  15. MESTINON [Concomitant]
     Dosage: 10 MG, UNKNOWN/D
     Route: 065
     Dates: start: 20100504
  16. COTRIM FORTE [Concomitant]
     Indication: ANTIFUNGAL PROPHYLAXIS
     Dosage: 960 MG, UNKNOWN/D
     Route: 065
     Dates: start: 20090711, end: 20091028
  17. DECORTIN H [Suspect]

REACTIONS (3)
  - Gastroenteritis [Recovered/Resolved]
  - C-reactive protein increased [Recovered/Resolved]
  - Blood creatinine increased [Recovered/Resolved]
